FAERS Safety Report 23684034 (Version 1)
Quarter: 2024Q1

REPORT INFORMATION
  Report Type: Spontaneous
  Country: FR (occurrence: FR)
  Receive Date: 20240328
  Receipt Date: 20240328
  Transmission Date: 20240409
  Serious: Yes (Hospitalization)
  Sender: FDA-Public Use
  Company Number: FR-PURDUE-USA-2024-0308642

PATIENT
  Age: 59 Year
  Sex: Female

DRUGS (8)
  1. MORPHINE SULFATE [Suspect]
     Active Substance: MORPHINE SULFATE
     Indication: Product used for unknown indication
     Dosage: ^SPEEDBALL^
     Dates: start: 20220902, end: 20220902
  2. COCAINE [Suspect]
     Active Substance: COCAINE
     Indication: Product used for unknown indication
     Dosage: REGULAR
     Route: 065
     Dates: start: 1981, end: 2013
  3. COCAINE [Suspect]
     Active Substance: COCAINE
     Dosage: OCCASIONAL
     Route: 065
     Dates: start: 2013
  4. COCAINE [Suspect]
     Active Substance: COCAINE
     Dosage: ^SPEEDBALL^
     Dates: start: 20220902, end: 20220902
  5. ALCOHOL [Suspect]
     Active Substance: ALCOHOL
     Indication: Product used for unknown indication
     Dosage: UNK
     Route: 048
  6. HEROIN [Suspect]
     Active Substance: DIAMORPHINE
     Indication: Product used for unknown indication
     Dosage: REGULAR
     Route: 065
     Dates: start: 1981, end: 2013
  7. HEROIN [Suspect]
     Active Substance: DIAMORPHINE
     Dosage: OCCASIONAL
     Route: 065
     Dates: start: 2013
  8. HEROIN [Suspect]
     Active Substance: DIAMORPHINE
     Dosage: ^SPEED BALL^
     Dates: start: 20220902, end: 20220902

REACTIONS (4)
  - Metabolic acidosis [Recovered/Resolved]
  - Drug abuse [Not Recovered/Not Resolved]
  - Poisoning [Recovered/Resolved]
  - Coma [Recovered/Resolved]

NARRATIVE: CASE EVENT DATE: 20220902
